FAERS Safety Report 15210510 (Version 2)
Quarter: 2018Q3

REPORT INFORMATION
  Report Type: Spontaneous
  Country: US (occurrence: US)
  Receive Date: 20180727
  Receipt Date: 20180827
  Transmission Date: 20181010
  Serious: No
  Sender: FDA-Public Use
  Company Number: US-JNJFOC-20180719004

PATIENT
  Age: 79 Year
  Sex: Female

DRUGS (1)
  1. IMBRUVICA [Suspect]
     Active Substance: IBRUTINIB
     Indication: MANTLE CELL LYMPHOMA STAGE IV
     Route: 065
     Dates: end: 2018

REACTIONS (3)
  - Rash erythematous [Unknown]
  - Drug ineffective [Unknown]
  - Exfoliative rash [Unknown]
